FAERS Safety Report 24678569 (Version 1)
Quarter: 2024Q4

REPORT INFORMATION
  Report Type: Spontaneous
  Country: IN (occurrence: IN)
  Receive Date: 20241129
  Receipt Date: 20241129
  Transmission Date: 20250115
  Serious: Yes (Other)
  Sender: ALKEM
  Company Number: IN-ALKEM LABORATORIES LIMITED-IN-ALKEM-2023-16329

PATIENT

DRUGS (4)
  1. ISONIAZID [Suspect]
     Active Substance: ISONIAZID
     Indication: Product used for unknown indication
     Dosage: UNK
     Route: 065
  2. ISONIAZID [Suspect]
     Active Substance: ISONIAZID
     Dosage: UNK (RESTARTED DOSE)
     Route: 065
  3. PYRAZINAMIDE [Suspect]
     Active Substance: PYRAZINAMIDE
     Indication: Product used for unknown indication
     Dosage: UNK
     Route: 065
  4. RIFAMPIN [Suspect]
     Active Substance: RIFAMPIN
     Indication: Product used for unknown indication
     Dosage: UNK
     Route: 065

REACTIONS (1)
  - Drug-induced liver injury [Unknown]
